FAERS Safety Report 8532772-9 (Version None)
Quarter: 2012Q3

REPORT INFORMATION
  Report Type: 
  Country: None (occurrence: None)
  Receive Date: 20120724
  Receipt Date: 20120712
  Transmission Date: 20120928
  Serious: Yes (Other)
  Sender: FDA-Public Use
  Company Number: NZ-CELGENEUS-118-C5013-12060394

PATIENT
  Sex: Male
  Weight: 64.8 kg

DRUGS (9)
  1. LANSOPRAZOLE [Concomitant]
     Route: 065
     Dates: start: 20100609
  2. NAPROXEN [Concomitant]
     Route: 065
     Dates: start: 20100609
  3. FLUARIX VACCINATION [Concomitant]
     Indication: PROPHYLAXIS
     Route: 065
     Dates: start: 20120328, end: 20120328
  4. CHLORAMBUCIL [Suspect]
     Dosage: 48 MILLIGRAM
     Route: 065
     Dates: start: 20120319, end: 20120416
  5. AMITRIPTYLINE HYDROCHLORIDE [Concomitant]
     Indication: HEADACHE
     Route: 065
     Dates: start: 20020404
  6. ALLOPURINOL [Concomitant]
     Indication: TUMOUR LYSIS SYNDROME
     Route: 065
     Dates: start: 20120316, end: 20120401
  7. CHLORAMBUCIL [Suspect]
     Route: 065
     Dates: start: 20120709
  8. TERAZOSIN HCL [Concomitant]
     Route: 065
     Dates: start: 20120609
  9. METACLOPRAMIDE [Concomitant]
     Indication: NAUSEA
     Route: 065
     Dates: start: 20120319

REACTIONS (1)
  - SKIN CANCER [None]
